FAERS Safety Report 10061011 (Version 1)
Quarter: 2014Q2

REPORT INFORMATION
  Report Type: Spontaneous
  Country: FR (occurrence: FR)
  Receive Date: 20140405
  Receipt Date: 20140405
  Transmission Date: 20141212
  Serious: Yes (Hospitalization)
  Sender: FDA-Public Use
  Company Number: FR-ACCORD-022925

PATIENT
  Age: 69 Year
  Sex: Male

DRUGS (3)
  1. FLUOROURACIL [Suspect]
     Indication: RECTAL CANCER METASTATIC
     Dosage: 7TH COURSE
     Route: 042
     Dates: start: 20140130
  2. AVASTIN [Suspect]
     Indication: RECTAL CANCER METASTATIC
     Dosage: 7TH COURSE, 450 MG IN 1 CYCLE
     Route: 042
     Dates: start: 20140130
  3. CAMPTO [Suspect]
     Indication: RECTAL CANCER METASTATIC
     Dosage: 7TH COURSE
     Route: 042
     Dates: start: 20140130

REACTIONS (3)
  - Proctitis [Unknown]
  - Condition aggravated [Not Recovered/Not Resolved]
  - Rectal haemorrhage [Not Recovered/Not Resolved]
